FAERS Safety Report 12565712 (Version 7)
Quarter: 2019Q1

REPORT INFORMATION
  Report Type: Spontaneous
  Country: US (occurrence: US)
  Receive Date: 20160718
  Receipt Date: 20190128
  Transmission Date: 20190417
  Serious: Yes (Hospitalization, Other)
  Sender: FDA-Public Use
  Company Number: US-PFIZER INC-2016337891

PATIENT
  Age: 66 Year
  Sex: Female
  Weight: 111 kg

DRUGS (39)
  1. INDAPAMIDE. [Concomitant]
     Active Substance: INDAPAMIDE
     Indication: BLOOD PRESSURE ABNORMAL
     Dosage: 2.5 MG, 1X/DAY
  2. POTASSIUM CHLORIDE. [Concomitant]
     Active Substance: POTASSIUM CHLORIDE
     Dosage: 20 MEQ, 2X/DAY (TAKE 2 TABLET BY ORAL ROUTE IN THE AM AND 1 TAB IN THE PM)
     Route: 048
     Dates: start: 20160810
  3. NEURONTIN [Concomitant]
     Active Substance: GABAPENTIN
     Dosage: UNK
  4. LYRICA [Suspect]
     Active Substance: PREGABALIN
     Indication: PAIN
     Dosage: 150 MG, 2X/DAY, (1 CAPSULE 2 TIMES A DAY)
     Route: 048
     Dates: start: 20160719
  5. DOXYCYCLINE HYCLATE. [Concomitant]
     Active Substance: DOXYCYCLINE HYCLATE
     Dosage: 100 MG, 2X/DAY
     Route: 048
     Dates: start: 20160810, end: 20161007
  6. MIRALAX [Concomitant]
     Active Substance: POLYETHYLENE GLYCOL 3350
     Dosage: 17 G, DAILY (MIXED WITH 8 OZ. WATER, JUICE, SODA, COFFEE OR TEA)
     Route: 048
     Dates: start: 20151109
  7. AMLODIPINE BESILATE [Concomitant]
     Active Substance: AMLODIPINE BESYLATE
     Dosage: 5 MG, DAILY
     Route: 048
     Dates: start: 20160810
  8. CLARITIN [Concomitant]
     Active Substance: LORATADINE
     Dosage: 10 MG, SINGLE
     Route: 048
     Dates: start: 20150910
  9. SELENIUM [Concomitant]
     Active Substance: SELENIUM
     Dosage: 1 DF, SINGLE
     Route: 048
  10. LASIX [Concomitant]
     Active Substance: FUROSEMIDE
     Indication: FLUID RETENTION
     Dosage: 40 MG, 2X/DAY
  11. ENALAPRIL MALEATE. [Concomitant]
     Active Substance: ENALAPRIL MALEATE
     Indication: BLOOD PRESSURE ABNORMAL
     Dosage: 20 MG, 1X/DAY
     Route: 048
  12. TIZANIDINE. [Concomitant]
     Active Substance: TIZANIDINE
     Indication: MUSCLE RELAXANT THERAPY
     Dosage: 4 MG, DAILY
  13. LANTUS [Concomitant]
     Active Substance: INSULIN GLARGINE
     Dosage: 73 IU, DAILY
     Route: 058
     Dates: start: 20160607
  14. NORCO [Concomitant]
     Active Substance: ACETAMINOPHEN\HYDROCODONE BITARTRATE
     Indication: PAIN
     Dosage: 1 DF, AS NEEDED  (HYDROCODONE BITARTRATE: 10 MG/ PARACETAMOL: 325 MG) (EVERY 3 HOURS)
     Route: 048
     Dates: start: 20160311
  15. SENNA PLUS [Concomitant]
     Active Substance: DOCUSATE SODIUM\SENNOSIDES\SENNOSIDES A AND B
     Dosage: 1 DF, 2X/DAY (DOCUSATE SODIUM: 8.6MG, SENNOSIDE A+B: 50MG)
     Route: 048
     Dates: start: 20150910
  16. TUSSIONEX PENNKINETIC [Concomitant]
     Active Substance: CHLORPHENIRAMINE\HYDROCODONE
     Dosage: 5 ML, 2X/DAY  (EVERY 12 HOURS) (10 MG-8 MG/5 ML SUSPENSION)
     Route: 048
     Dates: start: 20150817, end: 20161007
  17. LYRICA [Suspect]
     Active Substance: PREGABALIN
     Indication: DIABETIC NEUROPATHY
     Dosage: 100 MG, 2X/DAY
     Route: 048
     Dates: end: 20160703
  18. SYNTHROID [Concomitant]
     Active Substance: LEVOTHYROXINE SODIUM
     Dosage: 75 UG, DAILY
     Route: 048
     Dates: start: 20160414, end: 20161007
  19. INDAPAMIDE. [Concomitant]
     Active Substance: INDAPAMIDE
     Dosage: 2.5 MG, DAILY
     Route: 048
     Dates: start: 20161007
  20. MAGNESIUM OXIDE. [Concomitant]
     Active Substance: MAGNESIUM OXIDE
     Indication: BONE DISORDER
     Dosage: 400 MG, 2X/DAY
  21. BIOTIN [Concomitant]
     Active Substance: BIOTIN
     Dosage: 6 MG, DAILY (TAKE 6 CAPSULE BY ORAL ROUTE  EVERY DAY)
     Route: 048
     Dates: start: 20150910, end: 20161007
  22. ENALAPRIL MALEATE. [Concomitant]
     Active Substance: ENALAPRIL MALEATE
     Dosage: 20 MG, DAILY
     Route: 048
     Dates: start: 20161007
  23. MAGNESIUM OXIDE. [Concomitant]
     Active Substance: MAGNESIUM OXIDE
     Dosage: 600 MG, AS NEEDED (TAKE 1.5 BY ORAL ROUTE ONCE AS NEEDED)
     Route: 048
     Dates: start: 20160810
  24. CLONAZEPAM. [Concomitant]
     Active Substance: CLONAZEPAM
     Dosage: 1 MG, 3X/DAY
     Route: 048
     Dates: start: 20160810
  25. ENALAPRIL MALEATE. [Concomitant]
     Active Substance: ENALAPRIL MALEATE
     Indication: OLIGURIA
     Dosage: 20 MG, 1X/DAY
     Route: 048
     Dates: start: 20160707, end: 20161007
  26. AMLODIPINE BESILATE [Concomitant]
     Active Substance: AMLODIPINE BESYLATE
     Indication: BLOOD PRESSURE ABNORMAL
     Dosage: 5 MG, 1X/DAY
     Route: 048
  27. POTASSIUM CHLORIDE. [Concomitant]
     Active Substance: POTASSIUM CHLORIDE
     Dosage: 10MEQ, TWO IN THE MORNING AND ONE IN THE EVENING
  28. ZOMETA [Concomitant]
     Active Substance: ZOLEDRONIC ACID
     Dosage: UNK
  29. ALBUTEROL SULFATE. [Concomitant]
     Active Substance: ALBUTEROL SULFATE
     Dosage: 3 ML, AS NEEDED (2.5 MG/3 ML (0.083 %) SOLUTION FOR NEBULIZATION/BY NEBULIZATION ROUTE EVERY 4 HOUR)
     Route: 045
     Dates: start: 20160810
  30. FUROSEMIDE. [Concomitant]
     Active Substance: FUROSEMIDE
     Dosage: 40 MG, 2X/DAY
     Route: 048
     Dates: start: 20160912
  31. METHYLPREDNISOLONE. [Concomitant]
     Active Substance: METHYLPREDNISOLONE
     Dosage: 4 MG, UNK (TAKE BY ORAL ROUTE AS DIRECTED)
     Route: 048
     Dates: start: 20160817, end: 20161007
  32. ALPHA LIPOIC ACID [Concomitant]
     Active Substance: .ALPHA.-LIPOIC ACID
     Dosage: 200 MG, SINGLE
     Route: 048
     Dates: start: 20150910
  33. SYNTHROID [Concomitant]
     Active Substance: LEVOTHYROXINE SODIUM
     Indication: HYPOTHYROIDISM
     Dosage: 75 UG, DAILY
  34. SYNTHROID [Concomitant]
     Active Substance: LEVOTHYROXINE SODIUM
     Dosage: 75 UG, DAILY
     Route: 048
     Dates: start: 20161007
  35. GLIMEPIRIDE. [Concomitant]
     Active Substance: GLIMEPIRIDE
     Indication: DIABETES MELLITUS
     Dosage: 4 MG, 1X/DAY
  36. INDAPAMIDE. [Concomitant]
     Active Substance: INDAPAMIDE
     Dosage: 2.5 MG, DAILY
     Route: 048
     Dates: start: 20160426, end: 20161007
  37. HERCEPTIN [Concomitant]
     Active Substance: TRASTUZUMAB
     Dosage: UNK
  38. CHERATUSSIN AC [Concomitant]
     Active Substance: CODEINE PHOSPHATE\GUAIFENESIN
     Dosage: UNK UNK, AS NEEDED (CODEINE PHOSPHATE- 10 MG, GUAIFENESIN-100 MG) (TAKE 5 - 10 MILLILITRES BY ORAL )
     Route: 048
     Dates: start: 20160810, end: 20161007
  39. CLOTRIMAZOLE. [Concomitant]
     Active Substance: CLOTRIMAZOLE
     Dosage: 50 MG, DAILY  (1 TABLET BY ORAL ROUTE 5 TIMES EVERY DAY)
     Route: 048
     Dates: start: 20161007

REACTIONS (41)
  - Osteoarthritis [Unknown]
  - Oral candidiasis [Unknown]
  - Wheezing [Unknown]
  - Decreased appetite [Unknown]
  - Arthralgia [Unknown]
  - Intervertebral disc disorder [Unknown]
  - Drug ineffective [Recovering/Resolving]
  - Acute sinusitis [Unknown]
  - Disease recurrence [Unknown]
  - Pain [Unknown]
  - Laryngeal inflammation [Unknown]
  - Stress [Unknown]
  - Fatigue [Unknown]
  - Headache [Unknown]
  - Anxiety [Unknown]
  - Depression [Unknown]
  - Insomnia [Unknown]
  - Muscular weakness [Unknown]
  - Neck pain [Unknown]
  - Pneumonia [Recovering/Resolving]
  - Dysphonia [Unknown]
  - Cough [Unknown]
  - Haematuria [Unknown]
  - Back pain [Unknown]
  - Myalgia [Unknown]
  - Fall [Unknown]
  - Dysstasia [Unknown]
  - Myelopathy [Unknown]
  - Pain in extremity [Unknown]
  - Muscle spasms [Unknown]
  - Oedema peripheral [Not Recovered/Not Resolved]
  - Concussion [Unknown]
  - Haemorrhage [Unknown]
  - Oropharyngeal pain [Recovering/Resolving]
  - Upper respiratory tract infection [Unknown]
  - Malaise [Unknown]
  - Gait disturbance [Unknown]
  - Asthenia [Unknown]
  - Feeling abnormal [Unknown]
  - Bronchitis [Recovering/Resolving]
  - Arthritis [Unknown]

NARRATIVE: CASE EVENT DATE: 20160926
